FAERS Safety Report 21123749 (Version 1)
Quarter: 2022Q3

REPORT INFORMATION
  Report Type: Spontaneous
  Country: IL (occurrence: None)
  Receive Date: 20220725
  Receipt Date: 20220725
  Transmission Date: 20221027
  Serious: Yes (Hospitalization, Other)
  Sender: FDA-Public Use
  Company Number: IL-VistaPharm, Inc.-VER202207-000590

PATIENT
  Sex: Male
  Weight: 1.02 kg

DRUGS (1)
  1. ACETAMINOPHEN\HYDROCODONE [Suspect]
     Active Substance: ACETAMINOPHEN\HYDROCODONE
     Indication: Patent ductus arteriosus
     Dosage: 15 MG/KG/DOSE (100 MG/ML; TOTAL 294 MG/KG AT 60 MG/KG/DAY)

REACTIONS (1)
  - Haemolysis [Recovering/Resolving]
